FAERS Safety Report 9955252 (Version 2)
Quarter: 2014Q1

REPORT INFORMATION
  Report Type: Spontaneous
  Country: GB (occurrence: GB)
  Receive Date: 20140304
  Receipt Date: 20140314
  Transmission Date: 20141002
  Serious: Yes (Other)
  Sender: FDA-Public Use
  Company Number: GB-009507513-1402GBR012977

PATIENT
  Sex: Female

DRUGS (10)
  1. DEXAMETHASONE [Suspect]
     Route: 065
  2. DIAZEPAM [Interacting]
     Route: 065
  3. OMEPRAZOLE [Interacting]
     Route: 048
  4. PREDNISOLONE [Interacting]
     Route: 065
  5. IBUPROFEN [Interacting]
     Route: 065
  6. LORAZEPAM [Interacting]
     Route: 065
  7. METOCLOPRAMIDE [Interacting]
     Route: 065
  8. VITAMINS (UNSPECIFIED) [Interacting]
     Route: 065
  9. ACETAMINOPHEN [Interacting]
     Route: 065
  10. ZOMIG [Suspect]
     Indication: MIGRAINE
     Dosage: 2.5 MG, UNK
     Route: 048

REACTIONS (2)
  - Breast cancer [Unknown]
  - Drug interaction [Unknown]
